FAERS Safety Report 7953608 (Version 2)
Quarter: 2013Q4

REPORT INFORMATION
  Report Type: Spontaneous
  Country: US (occurrence: US)
  Receive Date: 20110520
  Receipt Date: 20131226
  Transmission Date: 20140711
  Serious: Yes (Disabling, Other)
  Sender: FDA-Public Use
  Company Number: US-ASTRAZENECA-2011SE15104

PATIENT
  Age: 53 Year
  Sex: Female
  Weight: 70.3 kg

DRUGS (15)
  1. VIMOVO [Suspect]
     Indication: ARTHRALGIA
     Dosage: 500 MG + 20 MG BID
     Route: 048
     Dates: start: 20110314, end: 20110317
  2. SYMBICORT [Suspect]
     Indication: CHRONIC OBSTRUCTIVE PULMONARY DISEASE
     Dosage: 160-4.5MCG, 2 PUFFS, BID
     Route: 055
     Dates: start: 2010
  3. SYMBICORT [Suspect]
     Indication: CHRONIC OBSTRUCTIVE PULMONARY DISEASE
     Dosage: 2 PUFFS, BID
     Route: 055
  4. CHANTIX [Concomitant]
     Indication: SMOKING CESSATION THERAPY
     Route: 048
  5. FLONASE [Concomitant]
     Indication: NASAL CONGESTION
     Route: 045
  6. IC CLONAZEPAM [Concomitant]
     Indication: ANXIETY
     Route: 048
  7. IC OXAZEPAM [Concomitant]
     Indication: MUSCLE RELAXANT THERAPY
     Route: 048
  8. IC OXAZEPAM [Concomitant]
     Indication: SLEEP DISORDER
     Route: 048
  9. NORCO [Concomitant]
     Indication: PAIN
     Dosage: 10-325 QID
     Route: 048
  10. SOMA [Concomitant]
     Indication: MUSCLE RELAXANT THERAPY
     Route: 048
  11. VENTOLIN [Concomitant]
     Indication: CHRONIC OBSTRUCTIVE PULMONARY DISEASE
     Dosage: PRN, 2-3 YEARS
  12. CELEBREX [Concomitant]
     Indication: NECK PAIN
     Dates: start: 201311
  13. NYSTATIN [Concomitant]
     Indication: CANDIDA INFECTION
  14. ADVAIR [Concomitant]
  15. DOXYCYCLINE [Concomitant]

REACTIONS (5)
  - Intervertebral disc degeneration [Unknown]
  - Pulmonary function test decreased [Unknown]
  - Musculoskeletal pain [Not Recovered/Not Resolved]
  - Adverse event [Unknown]
  - Drug dose omission [Unknown]
